FAERS Safety Report 10219833 (Version 2)
Quarter: 2014Q2

REPORT INFORMATION
  Report Type: Spontaneous
  Country: IT (occurrence: IT)
  Receive Date: 20140605
  Receipt Date: 20140605
  Transmission Date: 20141212
  Serious: Yes (Hospitalization, Other)
  Sender: FDA-Public Use
  Company Number: IT-ALLERGAN-1404733US

PATIENT
  Age: 33 Year
  Sex: Female

DRUGS (1)
  1. ZORAC GEL 0.1% [Suspect]
     Indication: ACNE
     Dosage: 1 DF, QD
     Route: 061
     Dates: start: 20131230, end: 201402

REACTIONS (7)
  - Abortion spontaneous [Unknown]
  - Pregnancy [Unknown]
  - Inappropriate schedule of drug administration [Unknown]
  - Intentional product misuse [None]
  - Exposure during pregnancy [None]
  - Human chorionic gonadotropin decreased [None]
  - Treatment noncompliance [None]
